FAERS Safety Report 9471734 (Version 1)
Quarter: 2013Q3

REPORT INFORMATION
  Report Type: Spontaneous
  Country: GB (occurrence: None)
  Receive Date: 20130819
  Receipt Date: 20130819
  Transmission Date: 20140515
  Serious: Yes (Other)
  Sender: FDA-Public Use
  Company Number: SYM-2013-08702

PATIENT
  Age: 17 Year
  Sex: Female

DRUGS (3)
  1. TIMOLOL MALEATE [Suspect]
     Indication: GLAUCOMA
  2. PILOCARPINE HYDROCHLORIDE [Suspect]
     Indication: GLAUCOMA
  3. BIMATOPROST(BIMATOPROST) [Concomitant]

REACTIONS (8)
  - Visual impairment [None]
  - Vision blurred [None]
  - Iris adhesions [None]
  - Pupillary reflex impaired [None]
  - Optic disc disorder [None]
  - Chorioretinal atrophy [None]
  - Intraocular pressure increased [None]
  - Adverse drug reaction [None]
